FAERS Safety Report 17940408 (Version 1)
Quarter: 2020Q2

REPORT INFORMATION
  Report Type: Spontaneous
  Country: US (occurrence: US)
  Receive Date: 20200624
  Receipt Date: 20200624
  Transmission Date: 20200714
  Serious: No
  Sender: FDA-Public Use
  Company Number: None

PATIENT
  Age: 68 Year
  Sex: Female
  Weight: 90.72 kg

DRUGS (1)
  1. METHOTREXATE 2.5MG TAB [Suspect]
     Active Substance: METHOTREXATE
     Indication: ARTHRALGIA
     Dosage: ?          QUANTITY:1 DF DOSAGE FORM;?
     Dates: start: 20181128, end: 20181215

REACTIONS (1)
  - Hair disorder [None]

NARRATIVE: CASE EVENT DATE: 201811
